FAERS Safety Report 9410324 (Version 1)
Quarter: 2013Q3

REPORT INFORMATION
  Report Type: Spontaneous
  Country: US (occurrence: None)
  Receive Date: 20130718
  Receipt Date: 20130718
  Transmission Date: 20140515
  Serious: Yes (Death, Life-Threatening, Hospitalization)
  Sender: FDA-Public Use
  Company Number: None

PATIENT
  Age: 78 Year
  Sex: Female
  Weight: 57.15 kg

DRUGS (1)
  1. SENSIPAR [Suspect]
     Indication: DRUG THERAPY

REACTIONS (2)
  - Malaise [None]
  - Blood pressure decreased [None]
